FAERS Safety Report 4614289-7 (Version None)
Quarter: 2005Q2

REPORT INFORMATION
  Report Type: 
  Country: None (occurrence: None)
  Receive Date: 20050225
  Receipt Date: 20050121
  Transmission Date: 20051028
  Serious: No
  Sender: FDA-Public Use
  Company Number: SUS1-2005-00038

PATIENT
  Sex: Female

DRUGS (1)
  1. FOSRENOL [Suspect]
     Dosage: 500 MG, 3X/DAY: TID, UNK
     Dates: start: 20050111, end: 20050101

REACTIONS (2)
  - PRURITUS GENERALISED [None]
  - RASH MORBILLIFORM [None]
